FAERS Safety Report 5931173-7 (Version None)
Quarter: 2008Q4

REPORT INFORMATION
  Report Type: 
  Country: None (occurrence: None)
  Receive Date: 20081027
  Receipt Date: 20081016
  Transmission Date: 20090506
  Serious: Yes (Other)
  Sender: FDA-Public Use
  Company Number: PHHY2008NL24913

PATIENT
  Sex: Male
  Weight: 50 kg

DRUGS (1)
  1. METHYLPHENIDATE HCL [Suspect]
     Indication: ATTENTION DEFICIT/HYPERACTIVITY DISORDER
     Dosage: 3DD10MG
     Dates: start: 20070606, end: 20070607

REACTIONS (3)
  - ABDOMINAL PAIN [None]
  - PRODUCT QUALITY ISSUE [None]
  - SKIN DISORDER [None]
